FAERS Safety Report 17758873 (Version 23)
Quarter: 2021Q4

REPORT INFORMATION
  Report Type: Spontaneous
  Country: CA (occurrence: CA)
  Receive Date: 20200508
  Receipt Date: 20211204
  Transmission Date: 20220304
  Serious: Yes (Hospitalization, Other)
  Sender: FDA-Public Use
  Company Number: CA-CELLTRION INC.-2020CA021397

PATIENT

DRUGS (41)
  1. INFLECTRA [Suspect]
     Active Substance: INFLIXIMAB-DYYB
     Indication: Crohn^s disease
     Dosage: 400 MG 0, 2, 6 WEEKS, THEN EVERY 6 WEEKS
     Route: 042
     Dates: start: 20200417
  2. INFLECTRA [Suspect]
     Active Substance: INFLIXIMAB-DYYB
     Dosage: 400 MG 0, 2, 6 WEEKS, THEN EVERY 6 WEEKS
     Route: 042
     Dates: start: 20200501
  3. INFLECTRA [Suspect]
     Active Substance: INFLIXIMAB-DYYB
     Dosage: 400 MG 0, 2, 6 WEEKS, THEN EVERY 6 WEEKS
     Route: 042
     Dates: start: 20200501, end: 20200501
  4. INFLECTRA [Suspect]
     Active Substance: INFLIXIMAB-DYYB
     Dosage: 400 MG 0, 2, 6 WEEKS, THEN EVERY 6 WEEKS
     Route: 042
     Dates: start: 20200527
  5. INFLECTRA [Suspect]
     Active Substance: INFLIXIMAB-DYYB
     Dosage: 400 MG 0, 2, 6 WEEKS, THEN EVERY 6 WEEKS
     Route: 042
     Dates: start: 20200717
  6. INFLECTRA [Suspect]
     Active Substance: INFLIXIMAB-DYYB
     Dosage: 400 MG 0, 2, 6 WEEKS, THEN EVERY 6 WEEKS
     Route: 042
     Dates: start: 20200826
  7. INFLECTRA [Suspect]
     Active Substance: INFLIXIMAB-DYYB
     Dosage: 400 MG 0, 2, 6 WEEKS, THEN EVERY 6 WEEKS
     Route: 042
     Dates: start: 20200826
  8. INFLECTRA [Suspect]
     Active Substance: INFLIXIMAB-DYYB
     Dosage: 400 MG 0, 2, 6 WEEKS, THEN EVERY 6 WEEKS
     Route: 042
     Dates: start: 20201007
  9. INFLECTRA [Suspect]
     Active Substance: INFLIXIMAB-DYYB
     Dosage: 400 MG 0, 2, 6 WEEKS, THEN EVERY 6 WEEKS
     Route: 042
     Dates: start: 20201202
  10. INFLECTRA [Suspect]
     Active Substance: INFLIXIMAB-DYYB
     Dosage: 400 MG 0, 2, 6 WEEKS, THEN EVERY 6 WEEKS
     Route: 042
     Dates: start: 20210120
  11. INFLECTRA [Suspect]
     Active Substance: INFLIXIMAB-DYYB
     Dosage: 400 MG 0, 2, 6 WEEKS, THEN EVERY 6 WEEKS
     Route: 042
     Dates: start: 20210319
  12. INFLECTRA [Suspect]
     Active Substance: INFLIXIMAB-DYYB
     Dosage: 400 MG 0, 2, 6 WEEKS, THEN EVERY 6 WEEKS
     Route: 042
     Dates: start: 20210428
  13. INFLECTRA [Suspect]
     Active Substance: INFLIXIMAB-DYYB
     Dosage: 400 MG 0, 2, 6 WEEKS, THEN EVERY 6 WEEKS
     Route: 042
     Dates: start: 20210609
  14. INFLECTRA [Suspect]
     Active Substance: INFLIXIMAB-DYYB
     Dosage: 400 MG 0, 2, 6 WEEKS, THEN EVERY 6 WEEKS
     Route: 042
     Dates: start: 20210721
  15. INFLECTRA [Suspect]
     Active Substance: INFLIXIMAB-DYYB
     Dosage: 400 MG 0, 2, 6 WEEKS, THEN EVERY 6 WEEKS
     Route: 042
     Dates: start: 20210915, end: 20211012
  16. ACETAMINOPHEN [Concomitant]
     Active Substance: ACETAMINOPHEN
     Indication: Premedication
     Dosage: UNK
     Dates: start: 20200501, end: 20200501
  17. ACETAMINOPHEN [Concomitant]
     Active Substance: ACETAMINOPHEN
     Dosage: 650 MG
     Dates: start: 20200717, end: 20200717
  18. ALEVE [Concomitant]
     Active Substance: NAPROXEN SODIUM
     Dosage: UNK
  19. ALESSE 28 [Concomitant]
     Active Substance: ETHINYL ESTRADIOL\LEVONORGESTREL
     Indication: Contraception
     Dosage: UNK DF
     Route: 048
  20. ALESSE 28 [Concomitant]
     Active Substance: ETHINYL ESTRADIOL\LEVONORGESTREL
     Indication: Menstrual disorder
     Dosage: 1 DF DOSAGE INFO UNKNOWN
     Route: 048
  21. BENADRYL [Concomitant]
     Active Substance: DIPHENHYDRAMINE HYDROCHLORIDE
     Indication: Premedication
     Dosage: 50 MG
     Route: 042
     Dates: start: 20200501, end: 20200501
  22. BENADRYL [Concomitant]
     Active Substance: DIPHENHYDRAMINE HYDROCHLORIDE
     Dosage: UNK
     Dates: start: 20200527, end: 20200527
  23. BENADRYL [Concomitant]
     Active Substance: DIPHENHYDRAMINE HYDROCHLORIDE
     Dosage: 1 BOTTLE
     Dates: start: 20210909, end: 20210909
  24. DIPHENHYDRAMINE [Concomitant]
     Active Substance: DIPHENHYDRAMINE
     Indication: Premedication
     Dosage: 50 MG
     Dates: start: 20200717, end: 20200717
  25. DESOGESTREL AND ETHINYL ESTRADIOL [Concomitant]
     Active Substance: DESOGESTREL\ETHINYL ESTRADIOL
     Dosage: UNK
  26. METHYLPREDNISOLONE [Concomitant]
     Active Substance: METHYLPREDNISOLONE
     Indication: Premedication
     Dosage: 20 MG, 2X/DAY
     Route: 042
     Dates: start: 20200306, end: 20200310
  27. METHYLPREDNISOLONE [Concomitant]
     Active Substance: METHYLPREDNISOLONE
     Dosage: 30 MG
     Route: 042
     Dates: start: 20200501, end: 20200501
  28. METHYLPREDNISOLONE [Concomitant]
     Active Substance: METHYLPREDNISOLONE
     Dosage: UNK
     Route: 042
     Dates: start: 20200527, end: 20200527
  29. METHYLPREDNISOLONE [Concomitant]
     Active Substance: METHYLPREDNISOLONE
     Dosage: 40 MG
     Dates: start: 20200717, end: 20200717
  30. ONDANSETRON [Concomitant]
     Active Substance: ONDANSETRON
     Indication: Nausea
     Dosage: 8 MG, AS NEEDED
     Route: 048
  31. ONDANSETRON [Concomitant]
     Active Substance: ONDANSETRON
     Dosage: UNK
  32. ONDANSETRON [Concomitant]
     Active Substance: ONDANSETRON
     Dosage: 1 DF, UNK DOSAGE INFO UNKNOWN, DRUG ONGOING
     Route: 065
  33. PREDNISONE [Concomitant]
     Active Substance: PREDNISONE
     Indication: Crohn^s disease
     Dosage: 40 MG, 1X/DAY
  34. PREDNISONE [Concomitant]
     Active Substance: PREDNISONE
     Dosage: 25 MG, DAILY TAPER (DECREASING BY 5 MG WEEKLY)
     Route: 065
  35. SINGULAIR [Concomitant]
     Active Substance: MONTELUKAST SODIUM
     Indication: Asthma
     Dosage: 10 MG
     Route: 048
  36. SERTRALINE [Concomitant]
     Active Substance: SERTRALINE HYDROCHLORIDE
     Indication: Depression
     Dosage: UNK
  37. SYMBICORT [Concomitant]
     Active Substance: BUDESONIDE\FORMOTEROL FUMARATE DIHYDRATE
     Indication: Asthma
     Dosage: 100 UG, 2 PUFFS 2X/DAY
     Route: 055
  38. TRAMADOL [Concomitant]
     Active Substance: TRAMADOL
     Indication: Pain
     Dosage: 100 MG, AS NEEDED
     Route: 048
  39. TRAMADOL [Concomitant]
     Active Substance: TRAMADOL
     Dosage: UNK
     Route: 048
  40. TRAMADOL [Concomitant]
     Active Substance: TRAMADOL
     Dosage: 1 DF DOSAGE INFO UNKNOWN
     Route: 048
  41. TORADOL [Concomitant]
     Active Substance: KETOROLAC TROMETHAMINE
     Indication: Pain
     Dosage: UNK, AS NEEDED

REACTIONS (42)
  - Suicide attempt [Not Recovered/Not Resolved]
  - Uveitis [Unknown]
  - Haemorrhage [Unknown]
  - Therapeutic product effect incomplete [Not Recovered/Not Resolved]
  - Off label use [Unknown]
  - Intentional product use issue [Unknown]
  - Off label use [Unknown]
  - Inappropriate schedule of product administration [Unknown]
  - Off label use [Unknown]
  - Blood pressure fluctuation [Recovered/Resolved]
  - Heart rate irregular [Recovered/Resolved]
  - Dizziness [Recovered/Resolved]
  - Chest discomfort [Recovered/Resolved]
  - Flushing [Recovered/Resolved]
  - Dyspnoea [Recovered/Resolved]
  - Condition aggravated [Not Recovered/Not Resolved]
  - Feeling abnormal [Unknown]
  - Arthralgia [Not Recovered/Not Resolved]
  - Migraine [Unknown]
  - Drug hypersensitivity [Unknown]
  - Headache [Unknown]
  - Abdominal pain upper [Unknown]
  - Malaise [Unknown]
  - Oropharyngeal pain [Recovered/Resolved]
  - Diarrhoea [Unknown]
  - Abdominal pain [Unknown]
  - Vomiting [Unknown]
  - Vitamin D decreased [Unknown]
  - Erythema [Unknown]
  - Pruritus [Not Recovered/Not Resolved]
  - Erythema [Not Recovered/Not Resolved]
  - Pain of skin [Not Recovered/Not Resolved]
  - Alopecia [Not Recovered/Not Resolved]
  - Erythema nodosum [Not Recovered/Not Resolved]
  - Arthralgia [Unknown]
  - Weight increased [Unknown]
  - Skin disorder [Unknown]
  - Dermatitis psoriasiform [Not Recovered/Not Resolved]
  - Ocular hyperaemia [Recovered/Resolved]
  - Dry eye [Unknown]
  - Depression [Not Recovered/Not Resolved]
  - Overdose [Not Recovered/Not Resolved]

NARRATIVE: CASE EVENT DATE: 20200501
